FAERS Safety Report 5967695-2 (Version None)
Quarter: 2008Q4

REPORT INFORMATION
  Report Type: 
  Country: None (occurrence: None)
  Receive Date: 20081126
  Receipt Date: 20081114
  Transmission Date: 20090506
  Serious: Yes (Hospitalization)
  Sender: FDA-Public Use
  Company Number: AT-RANBAXY-2008RR-19494

PATIENT
  Age: 78 Year
  Sex: Male
  Weight: 72 kg

DRUGS (4)
  1. CITALOPRAM HYDROBROMIDE [Suspect]
     Dosage: 20 MG, QD
     Route: 048
     Dates: start: 20080508, end: 20080520
  2. IBUPROFEN TABLETS [Suspect]
     Dosage: 400 MG, QD
     Route: 048
     Dates: start: 20080519, end: 20080520
  3. AXURA [Concomitant]
     Dosage: 5 MG, QD
     Route: 048
     Dates: start: 20080509, end: 20080520
  4. SEROQUEL [Concomitant]
     Dosage: 75 MG, QD
     Route: 048
     Dates: start: 20080508, end: 20080520

REACTIONS (1)
  - PHOTOSENSITIVITY REACTION [None]
